FAERS Safety Report 8325525-8 (Version None)
Quarter: 2012Q2

REPORT INFORMATION
  Report Type: 
  Country: None (occurrence: None)
  Receive Date: 20120501
  Receipt Date: 20120425
  Transmission Date: 20120825
  Serious: No
  Sender: FDA-Public Use
  Company Number: US-PFIZER INC-2012103009

PATIENT
  Sex: Female
  Weight: 81.633 kg

DRUGS (1)
  1. EFFEXOR XR [Suspect]
     Indication: DEPRESSION
     Dosage: 37.5 MG, DAILY
     Route: 048
     Dates: end: 20120401

REACTIONS (5)
  - NAUSEA [None]
  - HYPOAESTHESIA ORAL [None]
  - HYPOAESTHESIA [None]
  - GAIT DISTURBANCE [None]
  - DIZZINESS EXERTIONAL [None]
